FAERS Safety Report 4761335-6 (Version None)
Quarter: 2005Q3

REPORT INFORMATION
  Report Type: 
  Country: None (occurrence: None)
  Receive Date: 20050902
  Receipt Date: 20050902
  Transmission Date: 20060218
  Serious: Yes (Other)
  Sender: FDA-Public Use
  Company Number: None

PATIENT
  Sex: Female
  Weight: 65.318 kg

DRUGS (2)
  1. NAPROXEN [Suspect]
     Indication: BACK PAIN
     Dosage: 1 TAB 375 MG Q 8 H PRN
     Dates: start: 20050816
  2. NAPROXEN [Suspect]
     Indication: SPINAL COLUMN STENOSIS
     Dosage: 1 TAB 375 MG Q 8 H PRN
     Dates: start: 20050816

REACTIONS (2)
  - DRUG DISPENSING ERROR [None]
  - DRUG INEFFECTIVE [None]
